FAERS Safety Report 26077801 (Version 1)
Quarter: 2025Q4

REPORT INFORMATION
  Report Type: Spontaneous
  Country: US (occurrence: US)
  Receive Date: 20251122
  Receipt Date: 20251122
  Transmission Date: 20260117
  Serious: No
  Sender: MDD OPERATIONS
  Company Number: US-MDD US Operations-MDD202509-003662

PATIENT
  Age: 56 Year
  Sex: Male

DRUGS (2)
  1. ONAPGO [Suspect]
     Active Substance: APOMORPHINE HYDROCHLORIDE
     Indication: Parkinson^s disease
     Dosage: 3.5MG PER HOUR
  2. ONAPGO [Suspect]
     Active Substance: APOMORPHINE HYDROCHLORIDE
     Indication: On and off phenomenon
     Dosage: STRENGTH: 98MG/20ML, 98MG FOR 16 HOURS OR LESS EACH DAY. CONTINUOUS DOSE {MAX 6MG/HOUR OR 98MG/DAY)
     Route: 058
     Dates: start: 202507

REACTIONS (5)
  - Dissociation [Unknown]
  - Nodule [Not Recovered/Not Resolved]
  - Dyskinesia [Unknown]
  - Injection site erythema [Recovered/Resolved]
  - Dyskinesia [Recovered/Resolved]

NARRATIVE: CASE EVENT DATE: 20250901
